FAERS Safety Report 6061893-8 (Version None)
Quarter: 2009Q1

REPORT INFORMATION
  Report Type: 
  Country: None (occurrence: None)
  Receive Date: 20090202
  Receipt Date: 20090122
  Transmission Date: 20090719
  Serious: Yes (Hospitalization)
  Sender: FDA-Public Use
  Company Number: PHHY2008US18405

PATIENT

DRUGS (1)
  1. RECLAST [Suspect]
     Dosage: UNK
     Dates: start: 20080721

REACTIONS (3)
  - CHEST PAIN [None]
  - INFLUENZA LIKE ILLNESS [None]
  - PAIN [None]
